FAERS Safety Report 4684651-5 (Version None)
Quarter: 2005Q2

REPORT INFORMATION
  Report Type: 
  Country: None (occurrence: None)
  Receive Date: 20050531
  Receipt Date: 20050314
  Transmission Date: 20051028
  Serious: Yes (Hospitalization)
  Sender: FDA-Public Use
  Company Number: US_0502112040

PATIENT
  Age: 65 Year
  Sex: Female
  Weight: 68 kg

DRUGS (20)
  1. ZYPREXA [Suspect]
     Dosage: 2.5 MG/2 DAY
     Dates: start: 19981222, end: 20020101
  2. CELEXA [Concomitant]
  3. SEROQUEL [Concomitant]
  4. PAXIL [Concomitant]
  5. ZOLOFT [Concomitant]
  6. SYMBYAX [Concomitant]
  7. SERZONE [Concomitant]
  8. ATENOLOL [Concomitant]
  9. HYDROCHLOROTHIAZIDE [Concomitant]
  10. ZANTAC [Concomitant]
  11. ESTRATEST [Concomitant]
  12. VALSARTAN [Concomitant]
  13. ZOCOR (SIMVASTATIN RATIOPHARM) [Concomitant]
  14. TRICOR [Concomitant]
  15. NEXIUM [Concomitant]
  16. ASPIRIN [Concomitant]
  17. SYNTHROID [Concomitant]
  18. GLUCOPHAGE [Concomitant]
  19. CITRICAL (CALCIUM CARBONATE) [Concomitant]
  20. NEURONTIN [Concomitant]

REACTIONS (9)
  - DEEP VEIN THROMBOSIS [None]
  - DIABETES MELLITUS [None]
  - DIZZINESS [None]
  - DYSLIPIDAEMIA [None]
  - HELICOBACTER INFECTION [None]
  - HYPERTRIGLYCERIDAEMIA [None]
  - HYPOTHYROIDISM [None]
  - INFLUENZA [None]
  - PHARYNGITIS [None]
